FAERS Safety Report 12780213 (Version 1)
Quarter: 2016Q3

REPORT INFORMATION
  Report Type: Spontaneous
  Country: BR (occurrence: BR)
  Receive Date: 20160926
  Receipt Date: 20160926
  Transmission Date: 20161109
  Serious: Yes (Hospitalization, Other)
  Sender: FDA-Public Use
  Company Number: BR-ELI_LILLY_AND_COMPANY-BR201609007297

PATIENT
  Sex: Male
  Weight: 130 kg

DRUGS (1)
  1. INSULIN HUMAN [Suspect]
     Active Substance: INSULIN HUMAN
     Indication: PRODUCT USED FOR UNKNOWN INDICATION
     Dosage: UNK, UNKNOWN
     Route: 065

REACTIONS (7)
  - Body height decreased [Unknown]
  - Neuralgia [Unknown]
  - Stenosis [Unknown]
  - Blood glucose abnormal [Unknown]
  - Irritable bowel syndrome [Unknown]
  - Respiratory tract infection [Unknown]
  - Intervertebral disc protrusion [Unknown]
